FAERS Safety Report 4426119-7 (Version None)
Quarter: 2004Q3

REPORT INFORMATION
  Report Type: 
  Country: None (occurrence: None)
  Receive Date: 20040811
  Receipt Date: 20040803
  Transmission Date: 20050211
  Serious: No
  Sender: FDA-Public Use
  Company Number: 2004UW10336

PATIENT
  Sex: Female

DRUGS (1)
  1. XYLOCAINE [Suspect]
     Indication: CATARACT OPERATION
     Dosage: 1 ML TP
     Route: 061

REACTIONS (7)
  - ANAESTHETIC COMPLICATION [None]
  - CORNEAL DISORDER [None]
  - CORNEAL OPACITY [None]
  - EYE BURNS [None]
  - HYPERSENSITIVITY [None]
  - LOCAL REACTION [None]
  - PHARMACEUTICAL PRODUCT COMPLAINT [None]
